FAERS Safety Report 6874315-1 (Version None)
Quarter: 2010Q3

REPORT INFORMATION
  Report Type: 
  Country: None (occurrence: None)
  Receive Date: 20100723
  Receipt Date: 20100616
  Transmission Date: 20110219
  Serious: Yes (Other)
  Sender: FDA-Public Use
  Company Number: US-PFIZER INC-2009205451

PATIENT
  Sex: Female
  Weight: 79.365 kg

DRUGS (7)
  1. CHANTIX [Suspect]
     Indication: SMOKING CESSATION THERAPY
     Dosage: 0.5 MG, 2X/DAY
     Dates: start: 20080101, end: 20090401
  2. CARDIZEM [Concomitant]
     Dosage: UNK
  3. AVAPRO [Concomitant]
     Indication: HYPERTENSION
     Dosage: UNK
  4. LOVASTATIN [Concomitant]
     Indication: BLOOD CHOLESTEROL ABNORMAL
     Dosage: UNK
  5. ADVAIR DISKUS 100/50 [Concomitant]
     Indication: EMPHYSEMA
     Dosage: UNK
  6. PROAIR HFA [Concomitant]
     Indication: EMPHYSEMA
     Dosage: UNK
  7. SPIRIVA [Concomitant]
     Indication: EMPHYSEMA
     Dosage: UNK

REACTIONS (3)
  - ABNORMAL DREAMS [None]
  - DEPRESSED MOOD [None]
  - THINKING ABNORMAL [None]
